FAERS Safety Report 9200884 (Version 1)
Quarter: 2013Q1

REPORT INFORMATION
  Report Type: Spontaneous
  Country: US (occurrence: None)
  Receive Date: 20130328
  Receipt Date: 20130328
  Transmission Date: 20140127
  Serious: No
  Sender: FDA-Public Use
  Company Number: None

PATIENT
  Age: 73 Year
  Sex: Female

DRUGS (6)
  1. CABOZANTINIB [Suspect]
     Indication: NEUROENDOCRINE TUMOUR
     Route: 048
     Dates: start: 20121211, end: 20121225
  2. FOXXOUS GLUCONATO [Concomitant]
  3. MULTIVITAMINS [Concomitant]
  4. OXYCODONE [Concomitant]
  5. VITAMIN B 12 [Concomitant]
  6. VITAMIN D 3 [Concomitant]

REACTIONS (8)
  - Pancytopenia [None]
  - Liver function test abnormal [None]
  - Disseminated intravascular coagulation [None]
  - Autoimmune haemolytic anaemia [None]
  - Toxicity to various agents [None]
  - Abdominal pain [None]
  - Haematuria [None]
  - Contusion [None]
